FAERS Safety Report 19036851 (Version 1)
Quarter: 2021Q1

REPORT INFORMATION
  Report Type: Spontaneous
  Country: US (occurrence: US)
  Receive Date: 20210321
  Receipt Date: 20210321
  Transmission Date: 20210420
  Serious: Yes (Disabling)
  Sender: FDA-Public Use
  Company Number: None

PATIENT
  Age: 43 Year
  Sex: Female
  Weight: 76.5 kg

DRUGS (4)
  1. MAGNESIUM [Concomitant]
     Active Substance: MAGNESIUM
  2. ARTIFICIAL TEARS [Concomitant]
     Active Substance: GLYCERIN\HYPROMELLOSES\POLYETHYLENE GLYCOL 400
  3. EMGALITY [Suspect]
     Active Substance: GALCANEZUMAB-GNLM
     Indication: MIGRAINE
  4. BENADRYL [Concomitant]
     Active Substance: DIPHENHYDRAMINE HYDROCHLORIDE

REACTIONS (11)
  - Constipation [None]
  - Tinnitus [None]
  - Arthropathy [None]
  - Anxiety [None]
  - Insomnia [None]
  - Heart rate increased [None]
  - Arthralgia [None]
  - Respiratory rate increased [None]
  - Dyspnoea exertional [None]
  - Dry eye [None]
  - Foreign body sensation in eyes [None]

NARRATIVE: CASE EVENT DATE: 20201022
